FAERS Safety Report 24458106 (Version 1)
Quarter: 2024Q4

REPORT INFORMATION
  Report Type: Spontaneous
  Country: DE (occurrence: DE)
  Receive Date: 20241018
  Receipt Date: 20241018
  Transmission Date: 20250115
  Serious: Yes (Other)
  Sender: CELLTRION
  Company Number: DE-SAMSUNG BIOEPIS-SB-2024-10441

PATIENT

DRUGS (4)
  1. TRASTUZUMAB [Suspect]
     Active Substance: TRASTUZUMAB
     Indication: Salivary gland cancer
  2. TRASTUZUMAB [Suspect]
     Active Substance: TRASTUZUMAB
     Indication: Metastases to lung
  3. DOCETAXEL [Concomitant]
     Active Substance: DOCETAXEL
     Indication: Salivary gland cancer
  4. DOCETAXEL [Concomitant]
     Active Substance: DOCETAXEL
     Indication: Metastases to lung

REACTIONS (3)
  - Metastases to lung [Recovering/Resolving]
  - Off label use [Unknown]
  - Drug ineffective for unapproved indication [Unknown]
